FAERS Safety Report 11273000 (Version 1)
Quarter: 2015Q3

REPORT INFORMATION
  Report Type: Spontaneous
  Country: US (occurrence: US)
  Receive Date: 20150715
  Receipt Date: 20150715
  Transmission Date: 20151125
  Serious: Yes (Other)
  Sender: FDA-Public Use
  Company Number: US-009507513-1507USA005432

PATIENT
  Age: 23 Year
  Sex: Female
  Weight: 77.98 kg

DRUGS (1)
  1. NEXPLANON [Suspect]
     Active Substance: ETONOGESTREL
     Indication: CONTRACEPTION
     Dosage: EVERY THREE YEARS, LEFT ARM
     Route: 059
     Dates: start: 201401

REACTIONS (3)
  - Weight increased [Unknown]
  - Suicidal ideation [Unknown]
  - Eating disorder [Unknown]

NARRATIVE: CASE EVENT DATE: 201401
